FAERS Safety Report 5755289-3 (Version None)
Quarter: 2008Q2

REPORT INFORMATION
  Report Type: 
  Country: None (occurrence: None)
  Receive Date: 20080602
  Receipt Date: 20080522
  Transmission Date: 20081010
  Serious: Yes (Hospitalization, Other)
  Sender: FDA-Public Use
  Company Number: US-AMGEN-QUU275928

PATIENT
  Sex: Female

DRUGS (7)
  1. ENBREL [Suspect]
     Indication: RHEUMATOID ARTHRITIS
     Route: 058
     Dates: start: 19981101
  2. PREDNISONE TAB [Concomitant]
     Route: 048
  3. METHADONE HCL [Concomitant]
  4. PAXIL [Concomitant]
  5. PREVACID [Concomitant]
  6. ATARAX [Concomitant]
  7. DIPHENHYDRAMINE HCL [Concomitant]

REACTIONS (11)
  - ANAEMIA [None]
  - BACTERIAL INFECTION [None]
  - DEPRESSED LEVEL OF CONSCIOUSNESS [None]
  - DIABETES MELLITUS INADEQUATE CONTROL [None]
  - FURUNCLE [None]
  - INJECTION SITE IRRITATION [None]
  - NARCOTIC INTOXICATION [None]
  - NECK PAIN [None]
  - PNEUMONIA [None]
  - STAPHYLOCOCCAL SEPSIS [None]
  - URINARY TRACT INFECTION [None]
